FAERS Safety Report 25941967 (Version 1)
Quarter: 2025Q4

REPORT INFORMATION
  Report Type: Spontaneous
  Country: CN (occurrence: CN)
  Receive Date: 20251020
  Receipt Date: 20251020
  Transmission Date: 20260117
  Serious: Yes (Hospitalization)
  Sender: MERCK SHARP & DOHME LLC
  Company Number: CN-009507513-2339837

PATIENT
  Age: 33 Year
  Sex: Female
  Weight: 61 kg

DRUGS (2)
  1. KEYTRUDA [Suspect]
     Active Substance: PEMBROLIZUMAB
     Indication: Breast cancer stage II
     Route: 041
     Dates: start: 20250804, end: 20250929
  2. XELODA [Suspect]
     Active Substance: CAPECITABINE
     Indication: Breast cancer stage II
     Dosage: 500 MG/M^2 (1G), BID
     Route: 048
     Dates: start: 20250804, end: 20250929

REACTIONS (2)
  - Granulocytopenia [Not Recovered/Not Resolved]
  - Product use in unapproved indication [Unknown]

NARRATIVE: CASE EVENT DATE: 20250804
